FAERS Safety Report 11335646 (Version 1)
Quarter: 2015Q3

REPORT INFORMATION
  Report Type: Spontaneous
  Country: US (occurrence: None)
  Receive Date: 20150731
  Receipt Date: 20150731
  Transmission Date: 20151125
  Serious: Yes (Hospitalization)
  Sender: FDA-Public Use
  Company Number: None

PATIENT
  Age: 73 Year
  Sex: Male
  Weight: 91.8 kg

DRUGS (1)
  1. TERBINAFINE. [Suspect]
     Active Substance: TERBINAFINE
     Indication: PANCREATITIS
     Route: 048
     Dates: start: 20150201, end: 20150227

REACTIONS (2)
  - Pancreatitis [None]
  - Hepatic enzyme increased [None]

NARRATIVE: CASE EVENT DATE: 20150226
